FAERS Safety Report 8495072-1 (Version None)
Quarter: 2012Q3

REPORT INFORMATION
  Report Type: 
  Country: None (occurrence: None)
  Receive Date: 20120709
  Receipt Date: 20120702
  Transmission Date: 20120928
  Serious: No
  Sender: FDA-Public Use
  Company Number: US-JNJFOC-20120520682

PATIENT
  Sex: Male
  Weight: 65.77 kg

DRUGS (6)
  1. TESTOSTERONE [Concomitant]
     Indication: BLOOD TESTOSTERONE DECREASED
  2. DURAGESIC-100 [Suspect]
     Indication: BACK PAIN
     Route: 062
  3. DURAGESIC-100 [Suspect]
     Route: 062
     Dates: start: 20100101
  4. DURAGESIC-100 [Suspect]
     Indication: MUSCULOSKELETAL PAIN
     Route: 062
  5. DURAGESIC-100 [Suspect]
     Route: 062
     Dates: start: 20100101
  6. UNKNOWN MEDICATION [Suspect]
     Indication: BREAKTHROUGH PAIN
     Route: 065
     Dates: end: 20110101

REACTIONS (3)
  - DRUG INEFFECTIVE [None]
  - DRUG DOSE OMISSION [None]
  - PRODUCT QUALITY ISSUE [None]
